FAERS Safety Report 8991262 (Version 1)
Quarter: 2012Q4

REPORT INFORMATION
  Report Type: Report from Study
  Country: US (occurrence: US)
  Receive Date: 20121231
  Receipt Date: 20121231
  Transmission Date: 20130627
  Serious: Yes (Other)
  Sender: FDA-Public Use
  Company Number: US-ROCHE-1166782

PATIENT
  Sex: Male

DRUGS (2)
  1. OMALIZUMAB [Suspect]
     Indication: ASTHMA
     Route: 065
     Dates: start: 20060130
  2. FOSAMAX [Concomitant]
     Route: 065

REACTIONS (16)
  - Sleep apnoea syndrome [Unknown]
  - Acne [Unknown]
  - Nasal congestion [Recovering/Resolving]
  - Breath sounds abnormal [Unknown]
  - Pulmonary congestion [Recovering/Resolving]
  - Influenza [Unknown]
  - Pain [Unknown]
  - Pain in extremity [Unknown]
  - Nasopharyngitis [Unknown]
  - Dyspnoea [Unknown]
  - Wheezing [Unknown]
  - Rash erythematous [Unknown]
  - Productive cough [Unknown]
  - Headache [Unknown]
  - Pruritus [Unknown]
  - Cough [Unknown]
